FAERS Safety Report 9617972 (Version 1)
Quarter: 2013Q4

REPORT INFORMATION
  Report Type: Report from Study
  Country: US (occurrence: US)
  Receive Date: 20131011
  Receipt Date: 20131011
  Transmission Date: 20140711
  Serious: Yes (Hospitalization)
  Sender: FDA-Public Use
  Company Number: US-009507513-1310USA002908

PATIENT
  Age: 39 Year
  Sex: Male
  Weight: 90.6 kg

DRUGS (1)
  1. FOSAPREPITANT DIMEGLUMINE [Suspect]
     Indication: PROPHYLAXIS OF NAUSEA AND VOMITING
     Dosage: 150 MG DAYS 3, 4 AND 5
     Route: 042
     Dates: start: 20130905, end: 20130907

REACTIONS (1)
  - Diarrhoea [Recovered/Resolved with Sequelae]
